FAERS Safety Report 10249048 (Version 1)
Quarter: 2014Q2

REPORT INFORMATION
  Report Type: Spontaneous
  Country: US (occurrence: None)
  Receive Date: 20140619
  Receipt Date: 20140619
  Transmission Date: 20141212
  Serious: Yes (Other)
  Sender: FDA-Public Use
  Company Number: None

PATIENT
  Age: 7 Month
  Sex: Male
  Weight: 40.82 kg

DRUGS (1)
  1. ABILIFY [Suspect]
     Indication: ATTENTION DEFICIT/HYPERACTIVITY DISORDER
     Dosage: START WITH 1/2 TABLET INCREASE, ONCE DAILY, ORAL
     Route: 048
     Dates: start: 20140610, end: 20140617

REACTIONS (3)
  - Stomatitis [None]
  - Lacrimal disorder [None]
  - Oral pain [None]
